FAERS Safety Report 4692453-9 (Version None)
Quarter: 2005Q2

REPORT INFORMATION
  Report Type: 
  Country: None (occurrence: None)
  Receive Date: 20050613
  Receipt Date: 20050217
  Transmission Date: 20051028
  Serious: Yes (Disabling)
  Sender: FDA-Public Use
  Company Number: 2005-00321

PATIENT
  Age: 72 Year
  Sex: Male
  Weight: 97.1 kg

DRUGS (5)
  1. VELCADE [Suspect]
     Indication: MULTIPLE MYELOMA
     Dosage: 2.90 MG, 2/WEEK, IV BOLUS
     Route: 040
     Dates: start: 20040501
  2. THALIDOMIDE(THALIDOMIDE [Suspect]
     Indication: MULTIPLE MYELOMA
     Dosage: 100.00 MG, QD, ORAL
     Route: 048
     Dates: start: 20040701
  3. DECADRON [Concomitant]
  4. PAXIL [Concomitant]
  5. ZOMETA [Concomitant]

REACTIONS (3)
  - DIARRHOEA [None]
  - NEUROPATHY PERIPHERAL [None]
  - ORTHOSTATIC HYPOTENSION [None]
